FAERS Safety Report 14297752 (Version 1)
Quarter: 2017Q4

REPORT INFORMATION
  Report Type: Spontaneous
  Country: CZ (occurrence: CZ)
  Receive Date: 20171218
  Receipt Date: 20171218
  Transmission Date: 20180321
  Serious: Yes (Death, Life-Threatening, Other)
  Sender: FDA-Public Use
  Company Number: CZ-MYLANLABS-2017M1078819

PATIENT
  Age: 45 Year
  Sex: Female

DRUGS (7)
  1. DOXORUBICIN [Suspect]
     Active Substance: DOXORUBICIN
     Indication: POST TRANSPLANT LYMPHOPROLIFERATIVE DISORDER
  2. CYCLOPHOSPHAMIDE. [Suspect]
     Active Substance: CYCLOPHOSPHAMIDE
     Indication: POST TRANSPLANT LYMPHOPROLIFERATIVE DISORDER
  3. LINEZOLID. [Concomitant]
     Active Substance: LINEZOLID
     Indication: DIARRHOEA
  4. MEROPENEM. [Concomitant]
     Active Substance: MEROPENEM
     Indication: DIARRHOEA
  5. PREDNISONE. [Suspect]
     Active Substance: PREDNISONE
     Indication: POST TRANSPLANT LYMPHOPROLIFERATIVE DISORDER
  6. AMIKACIN [Concomitant]
     Active Substance: AMIKACIN
     Indication: DIARRHOEA
  7. VINCRISTINE [Suspect]
     Active Substance: VINCRISTINE
     Indication: POST TRANSPLANT LYMPHOPROLIFERATIVE DISORDER

REACTIONS (2)
  - Septic shock [Fatal]
  - Drug ineffective [Fatal]
